FAERS Safety Report 19283426 (Version 1)
Quarter: 2021Q2

REPORT INFORMATION
  Report Type: Spontaneous
  Country: US (occurrence: US)
  Receive Date: 20210521
  Receipt Date: 20210521
  Transmission Date: 20210717
  Serious: No
  Sender: FDA-Public Use
  Company Number: None

PATIENT
  Age: 50 Year
  Sex: Male
  Weight: 138.8 kg

DRUGS (3)
  1. CABAZITAXEL [Suspect]
     Active Substance: CABAZITAXEL
     Dates: end: 20210510
  2. ABIRATERONE ACETATE. [Suspect]
     Active Substance: ABIRATERONE ACETATE
     Dates: end: 20210518
  3. PREDNISONE. [Suspect]
     Active Substance: PREDNISONE
     Dates: end: 20210520

REACTIONS (3)
  - White blood cell count decreased [None]
  - Neutropenia [None]
  - Neutrophil count decreased [None]

NARRATIVE: CASE EVENT DATE: 20210518
